FAERS Safety Report 6378593-7 (Version None)
Quarter: 2009Q3

REPORT INFORMATION
  Report Type: 
  Country: None (occurrence: None)
  Receive Date: 20090928
  Receipt Date: 20090917
  Transmission Date: 20100115
  Serious: Yes (Hospitalization)
  Sender: FDA-Public Use
  Company Number: FR-TEVA-209708ISR

PATIENT
  Sex: Male

DRUGS (15)
  1. IRINOTECAN HCL [Suspect]
     Indication: GASTRIC CANCER
     Route: 042
     Dates: start: 20060113
  2. IRINOTECAN HCL [Suspect]
     Route: 011
     Dates: start: 20060315
  3. IRINOTECAN HCL [Suspect]
     Route: 042
     Dates: start: 20060412
  4. FLUOROURACIL [Suspect]
     Indication: GASTRIC CANCER
     Route: 041
     Dates: start: 20060113
  5. FLUOROURACIL [Suspect]
     Route: 040
     Dates: start: 20060113
  6. FLUOROURACIL [Suspect]
     Route: 041
     Dates: start: 20060315
  7. FLUOROURACIL [Suspect]
     Route: 040
     Dates: start: 20060315
  8. FLUOROURACIL [Suspect]
     Route: 040
     Dates: start: 20060412, end: 20060412
  9. FLUOROURACIL [Suspect]
     Dates: start: 20060412, end: 20060413
  10. FOLINIC ACID [Suspect]
     Indication: GASTRIC CANCER
     Route: 042
     Dates: start: 20060113
  11. FOLINIC ACID [Suspect]
     Route: 042
     Dates: start: 20060315
  12. FOLINIC ACID [Suspect]
     Dates: start: 20060412
  13. ATROPINE SULFATE [Concomitant]
     Dates: start: 20060412, end: 20060412
  14. ONDANSETRON HYDROCHLORIDE [Concomitant]
     Dates: start: 20060412, end: 20060412
  15. METHYLPREDNISOLONE SODIUM SUCCINATE [Concomitant]
     Dates: start: 20060412, end: 20060412

REACTIONS (1)
  - LOBAR PNEUMONIA [None]
